FAERS Safety Report 24670469 (Version 1)
Quarter: 2024Q4

REPORT INFORMATION
  Report Type: Spontaneous
  Country: US (occurrence: None)
  Receive Date: 20241126
  Receipt Date: 20241126
  Transmission Date: 20250115
  Serious: Yes (Death, Hospitalization)
  Sender: Public
  Company Number: None

PATIENT
  Age: 86 Year
  Sex: Male
  Weight: 67.4 kg

DRUGS (1)
  1. CEMIPLIMAB-RWLC [Suspect]
     Active Substance: CEMIPLIMAB-RWLC
     Indication: Squamous cell carcinoma of skin
     Dosage: 350 MG EVERY 3 WEEKS INTRAVENOUS?
     Route: 042
     Dates: start: 20241008, end: 20241008

REACTIONS (6)
  - General physical health deterioration [None]
  - Asthenia [None]
  - Hypotension [None]
  - Troponin increased [None]
  - Acute kidney injury [None]
  - Myocarditis [None]

NARRATIVE: CASE EVENT DATE: 20241108
